FAERS Safety Report 7430232-X (Version None)
Quarter: 2011Q2

REPORT INFORMATION
  Report Type: 
  Country: None (occurrence: None)
  Receive Date: 20110421
  Receipt Date: 20101014
  Transmission Date: 20111010
  Serious: No
  Sender: FDA-Public Use
  Company Number: US-ASTRAZENECA-2010SE48583

PATIENT
  Age: 62 Year
  Sex: Male
  Weight: 70.3 kg

DRUGS (3)
  1. DIOVAN [Concomitant]
     Indication: HYPERTENSION
  2. TOPROL-XL [Suspect]
     Indication: HYPERTENSION
     Route: 048
     Dates: start: 20090101
  3. ASPIRIN [Concomitant]

REACTIONS (6)
  - HEART RATE IRREGULAR [None]
  - HEAD DISCOMFORT [None]
  - HEART RATE INCREASED [None]
  - HEADACHE [None]
  - BLOOD PRESSURE FLUCTUATION [None]
  - ABDOMINAL DISCOMFORT [None]
